FAERS Safety Report 12434311 (Version 2)
Quarter: 2016Q2

REPORT INFORMATION
  Report Type: Spontaneous
  Country: US (occurrence: US)
  Receive Date: 20160603
  Receipt Date: 20160616
  Transmission Date: 20160815
  Serious: Yes (Other)
  Sender: FDA-Public Use
  Company Number: US-TEVA-664612USA

PATIENT
  Age: 48 Year
  Sex: Male

DRUGS (1)
  1. ZECUITY [Suspect]
     Active Substance: SUMATRIPTAN SUCCINATE
     Indication: HEADACHE
     Route: 062
     Dates: start: 20160510, end: 20160510

REACTIONS (10)
  - Miliaria [Unknown]
  - Chemical injury [Unknown]
  - Application site pain [Unknown]
  - Hyperhidrosis [Unknown]
  - Application site pruritus [Not Recovered/Not Resolved]
  - Skin texture abnormal [Not Recovered/Not Resolved]
  - Application site rash [Unknown]
  - Application site discolouration [Recovering/Resolving]
  - Application site erythema [Recovered/Resolved]
  - Drug effect incomplete [Unknown]

NARRATIVE: CASE EVENT DATE: 20160510
